FAERS Safety Report 8384668-3 (Version None)
Quarter: 2012Q2

REPORT INFORMATION
  Report Type: 
  Country: None (occurrence: None)
  Receive Date: 20120524
  Receipt Date: 20120514
  Transmission Date: 20120825
  Serious: No
  Sender: FDA-Public Use
  Company Number: US-ASTRAZENECA-2012SE09218

PATIENT
  Age: 72 Year
  Sex: Female
  Weight: 73.9 kg

DRUGS (4)
  1. NEXIUM [Suspect]
     Route: 048
     Dates: end: 20120201
  2. TETRACYCLINE [Concomitant]
     Indication: RASH
  3. SEROQUEL XR [Suspect]
     Indication: SLEEP DISORDER
     Route: 048
  4. PENICILLIN [Concomitant]
     Indication: RASH

REACTIONS (6)
  - NECK PAIN [None]
  - INTERVERTEBRAL DISC PROTRUSION [None]
  - OFF LABEL USE [None]
  - PAIN IN EXTREMITY [None]
  - MALAISE [None]
  - DRUG DOSE OMISSION [None]
